FAERS Safety Report 4359631-X (Version None)
Quarter: 2004Q2

REPORT INFORMATION
  Report Type: 
  Country: None (occurrence: None)
  Receive Date: 20040513
  Receipt Date: 20040504
  Transmission Date: 20050107
  Serious: Yes (Other)
  Sender: FDA-Public Use
  Company Number: 2004030384

PATIENT
  Age: 62 Year
  Sex: Female
  Weight: 90 kg

DRUGS (5)
  1. AMLODIPINE [Suspect]
     Indication: HYPERTENSION
     Dosage: 5 MG (5 MG, 1 IN 1 D), ORAL
     Route: 048
     Dates: start: 20040301
  2. ALOE VERA/EMU OIL/HERBAL PREPARATIONS/MSM (ALOE VERA, EMU OIL, HERBAL [Concomitant]
  3. FISH OIL (FISH OIL) [Concomitant]
  4. BEE POLLEN (BEE POLLEN) [Concomitant]
  5. DIURETICS (DIURETICS) [Concomitant]

REACTIONS (1)
  - PSORIASIS [None]
